FAERS Safety Report 4655354-8 (Version None)
Quarter: 2005Q2

REPORT INFORMATION
  Report Type: 
  Country: None (occurrence: None)
  Receive Date: 20050506
  Receipt Date: 20050425
  Transmission Date: 20051028
  Serious: Yes (Hospitalization)
  Sender: FDA-Public Use
  Company Number: PHHO2005US06674

PATIENT
  Age: 75 Year
  Sex: Female
  Weight: 61 kg

DRUGS (3)
  1. RANIBIZUMAB OR PLACEBO [Suspect]
     Indication: MACULAR DEGENERATION
     Dosage: CODE NOT BROKEN
     Dates: start: 20030520
  2. DIOVAN [Suspect]
  3. HYDROCHLOROTHIAZIDE [Suspect]

REACTIONS (6)
  - COLD SWEAT [None]
  - DIZZINESS [None]
  - HYPERHIDROSIS [None]
  - NAUSEA [None]
  - PRESCRIBED OVERDOSE [None]
  - SYNCOPE [None]
